FAERS Safety Report 25670472 (Version 2)
Quarter: 2025Q4

REPORT INFORMATION
  Report Type: Spontaneous
  Country: EU (occurrence: EU)
  Receive Date: 20250812
  Receipt Date: 20251210
  Transmission Date: 20260118
  Serious: Yes (Other)
  Sender: AUROBINDO
  Company Number: EU-ABBVIE-6176987

PATIENT
  Age: 63 Year
  Sex: Female

DRUGS (17)
  1. AZACITIDINE [Suspect]
     Active Substance: AZACITIDINE
     Indication: Acute myeloid leukaemia
     Dosage: 121.5 MG/M2, DAILY
     Route: 065
     Dates: start: 20241220, end: 20241227
  2. VENETOCLAX [Suspect]
     Active Substance: VENETOCLAX
     Indication: Acute myeloid leukaemia
     Dosage: 100 MILLIGRAM
     Dates: start: 20241220, end: 20241221
  3. VENETOCLAX [Suspect]
     Active Substance: VENETOCLAX
     Dosage: 200 MILLIGRAM
     Dates: start: 20241222, end: 20241222
  4. VENETOCLAX [Suspect]
     Active Substance: VENETOCLAX
     Dosage: 400 MILLIGRAM
  5. DEXAMETHASONE SODIUM PHOSPHATE [Concomitant]
     Active Substance: DEXAMETHASONE SODIUM PHOSPHATE
     Indication: Hyperleukocytosis
     Dosage: UNK
     Dates: start: 20241210, end: 20250101
  6. PANTOPRAZOLO ACCORD [Concomitant]
     Indication: Prophylaxis
     Dosage: 400 MILLIGRAM
  7. LEVOFLOXACIN [Concomitant]
     Active Substance: LEVOFLOXACIN
     Indication: Product used for unknown indication
     Dosage: 500 MILLIGRAM, ONCE A DAY
     Dates: start: 20250103, end: 20250130
  8. ALLOPURINOL [Concomitant]
     Active Substance: ALLOPURINOL
     Indication: Prophylaxis
     Dosage: 300 MILLIGRAM, ONCE A DAY
     Dates: start: 20241220, end: 20241230
  9. LASIX [Concomitant]
     Active Substance: FUROSEMIDE
     Indication: Renal failure
     Dosage: 500 MILLIGRAM, ONCE A DAY
     Dates: start: 20241210, end: 20241216
  10. ONDANSETRON [Concomitant]
     Active Substance: ONDANSETRON
     Indication: Prophylaxis of nausea and vomiting
     Dosage: 8 MILLIGRAM, ONCE A DAY
     Dates: start: 20241220, end: 20241227
  11. VALSARTAN [Concomitant]
     Active Substance: VALSARTAN
     Indication: Hypertension
     Dosage: 40 MILLIGRAM, ONCE A DAY
     Dates: start: 20241211
  12. PIPERACILLIN AND TAZOBACTAM [Concomitant]
     Active Substance: PIPERACILLIN SODIUM\TAZOBACTAM SODIUM
     Indication: Pneumonia escherichia
     Dosage: 4.5 MILLIGRAM
     Dates: start: 20241219, end: 20250102
  13. HUMALOG [Concomitant]
     Active Substance: INSULIN LISPRO
     Indication: Cerebral haemorrhage
     Dosage: 6 OTHER
     Dates: start: 20241218, end: 20241230
  14. ONCOCARBIL [Concomitant]
     Indication: Prophylaxis
     Dosage: 1500 MILLIGRAM, ONCE A DAY
     Dates: start: 20241210, end: 20241216
  15. NORVASC [Concomitant]
     Active Substance: AMLODIPINE BESYLATE
     Indication: Hypertension
     Dosage: 10 MILLIGRAM, ONCE A DAY
     Dates: start: 20241217
  16. FILGRASTIM [Concomitant]
     Active Substance: FILGRASTIM
     Indication: Neutropenia
     Dosage: UNK
     Route: 065
  17. Covid-19 vaccine [Concomitant]
     Indication: Product used for unknown indication
     Dosage: UNK
     Route: 065

REACTIONS (3)
  - Thrombocytopenia [Recovered/Resolved]
  - Neutropenia [Recovered/Resolved]
  - Disease progression [Recovered/Resolved]

NARRATIVE: CASE EVENT DATE: 20241219
